FAERS Safety Report 7118793-1 (Version None)
Quarter: 2010Q4

REPORT INFORMATION
  Report Type: 
  Country: None (occurrence: None)
  Receive Date: 20101123
  Receipt Date: 20100927
  Transmission Date: 20110411
  Serious: No
  Sender: FDA-Public Use
  Company Number: US-KINGPHARMUSA00001-K201001267

PATIENT
  Age: 88 Year
  Sex: Male
  Weight: 66.7 kg

DRUGS (7)
  1. FLECTOR [Suspect]
     Dosage: UNK PATCH, UNK
     Route: 061
  2. VOLTAREN [Suspect]
     Indication: NECK PAIN
     Dosage: 2 G, TID
     Route: 061
  3. VOLTAREN [Suspect]
     Indication: NECK INJURY
  4. COUMADIN [Concomitant]
  5. COREG [Concomitant]
  6. ENALAPRIL MALEATE [Concomitant]
  7. TYLENOL (CAPLET) [Concomitant]

REACTIONS (2)
  - DYSPNOEA [None]
  - SOMNOLENCE [None]
